FAERS Safety Report 7677192-4 (Version None)
Quarter: 2011Q3

REPORT INFORMATION
  Report Type: 
  Country: None (occurrence: None)
  Receive Date: 20110811
  Receipt Date: 20110728
  Transmission Date: 20111222
  Serious: No
  Sender: FDA-Public Use
  Company Number: US-B.I. PHARMACEUTICALS,INC./RIDGEFIELD-2011-BP-18751BP

PATIENT
  Age: 80 Year
  Sex: Female

DRUGS (12)
  1. MULTAQ [Concomitant]
     Indication: ATRIAL FIBRILLATION
  2. SINGULAIR [Concomitant]
     Indication: ASTHMA
  3. PATANASE NASAL SPRAY [Concomitant]
     Indication: HYPERSENSITIVITY
  4. PRADAXA [Suspect]
     Indication: ATRIAL FIBRILLATION
     Dosage: 300 MG
     Route: 048
     Dates: start: 20101201, end: 20110726
  5. ISOSORBIDE DINITRATE [Concomitant]
     Indication: CARDIAC DISORDER
  6. PULMICORT [Concomitant]
     Indication: ASTHMA
  7. PRADAXA [Suspect]
     Dosage: 150 MG
     Route: 048
     Dates: start: 20110727
  8. CARDIZEM CD [Concomitant]
     Indication: CARDIAC DISORDER
  9. ASTHMONEX [Concomitant]
     Indication: HYPERSENSITIVITY
  10. ACTONEL [Concomitant]
     Indication: OSTEOPOROSIS
  11. NASONEX [Concomitant]
     Indication: HYPERSENSITIVITY
  12. ASPIRIN [Concomitant]

REACTIONS (3)
  - ARTHRALGIA [None]
  - BLOOD CHOLESTEROL INCREASED [None]
  - CONTUSION [None]
